FAERS Safety Report 19899835 (Version 1)
Quarter: 2021Q3

REPORT INFORMATION
  Report Type: Spontaneous
  Country: CA (occurrence: CA)
  Receive Date: 20210929
  Receipt Date: 20210929
  Transmission Date: 20211014
  Serious: Yes (Other)
  Sender: FDA-Public Use
  Company Number: CA-PFIZER INC-202101274661

PATIENT
  Age: 43 Year
  Sex: Female

DRUGS (24)
  1. HYDROMORPHONE HYDROCHLORIDE. [Suspect]
     Active Substance: HYDROMORPHONE HYDROCHLORIDE
     Dosage: 2.0 UNK, Q12H
     Route: 065
  2. AIMOVIG [Suspect]
     Active Substance: ERENUMAB-AOOE
     Dosage: UNK
     Route: 065
  3. CYCLOBENZAPRINE HYDROCHLORIDE. [Suspect]
     Active Substance: CYCLOBENZAPRINE HYDROCHLORIDE
     Dosage: 1.0 UNK, QD
     Route: 065
  4. PANTOPRAZOLE [Suspect]
     Active Substance: PANTOPRAZOLE
     Dosage: 1 DOSAGE FORM, Q12H
     Route: 065
  5. TRAZODONE HYDROCHLORIDE. [Suspect]
     Active Substance: TRAZODONE HYDROCHLORIDE
     Dosage: 1.0 UNK, QD
     Route: 065
  6. RANITIDINE. [Suspect]
     Active Substance: RANITIDINE
     Dosage: UNK
     Route: 065
  7. NAPROXEN. [Suspect]
     Active Substance: NAPROXEN
     Dosage: 2.0 UNK, Q12H
     Route: 065
  8. TOPIRAMATE. [Suspect]
     Active Substance: TOPIRAMATE
     Dosage: 25.0 UNK, QD
     Route: 065
  9. AVAMYS [Suspect]
     Active Substance: FLUTICASONE FUROATE
     Dosage: 1.0 UNK, QD
     Route: 065
  10. VITAMIN D3 [Suspect]
     Active Substance: CHOLECALCIFEROL
     Dosage: UNK
     Route: 065
  11. LAMICTAL [Suspect]
     Active Substance: LAMOTRIGINE
     Dosage: 50.0 MILLIGRAM, Q12H
     Route: 048
  12. FINACEA [Suspect]
     Active Substance: AZELAIC ACID
     Dosage: 1.0 UNK, QD
     Route: 065
  13. CALCIUM CARBONATE/CALCIUM CITRATE/CALCIUM PHOSPHATE/CHOLECALCIFEROL/VITAMIN D [Suspect]
     Active Substance: CALCIUM CARBONATE\CALCIUM CITRATE\CALCIUM PHOSPHATE\CHOLECALCIFEROL\VITAMIN D
     Dosage: 1.0 DOSAGE FORM, QD
     Route: 065
  14. FETZIMA [Suspect]
     Active Substance: LEVOMILNACIPRAN HYDROCHLORIDE
     Dosage: 1.0 UNK, QD
     Route: 065
  15. TOPICORT [Suspect]
     Active Substance: DESOXIMETASONE
     Dosage: 1.0 UNK, Q12H
     Route: 065
  16. MYRBETRIQ [Suspect]
     Active Substance: MIRABEGRON
     Dosage: 1.0 UNK, QD
     Route: 065
  17. LAMICTAL [Suspect]
     Active Substance: LAMOTRIGINE
     Dosage: 25.0 MILLIGRAM, Q12H
     Route: 048
  18. ATOMOXETINE HYDROCHLORIDE. [Suspect]
     Active Substance: ATOMOXETINE HYDROCHLORIDE
     Indication: MIGRAINE
     Dosage: 1.0 UNK, QD
     Route: 065
  19. BOTULINUM TOXIN TYPE A [Suspect]
     Active Substance: BOTULINUM TOXIN TYPE A
     Dosage: UNK
     Route: 065
  20. BUTRANS [Suspect]
     Active Substance: BUPRENORPHINE
     Dosage: UNK
     Route: 065
  21. DOMPERIDONE MALEATE/PANTOPRAZOLE SODIUM SESQUIHYDRATE [Suspect]
     Active Substance: DOMPERIDONE\PANTOPRAZOLE SODIUM
     Dosage: 3.0 UNK, 1EVERY 8 HR
     Route: 065
  22. CETIRIZINE HCL / PSEUDOEPHEDRINE HCL [Suspect]
     Active Substance: CETIRIZINE HYDROCHLORIDE\PSEUDOEPHEDRINE HYDROCHLORIDE
     Dosage: UNK
     Route: 065
  23. BETAMETHASONE VALERATE. [Suspect]
     Active Substance: BETAMETHASONE VALERATE
     Dosage: 1.0 UNK, QD
     Route: 065
  24. TRETINOIN. [Suspect]
     Active Substance: TRETINOIN
     Dosage: UNK
     Route: 065

REACTIONS (14)
  - Vomiting [Unknown]
  - Blepharospasm [Unknown]
  - Drug intolerance [Unknown]
  - Memory impairment [Unknown]
  - Epilepsy [Unknown]
  - Migraine [Unknown]
  - Paraesthesia [Unknown]
  - Off label use [Unknown]
  - Abdominal pain upper [Unknown]
  - Gastrooesophageal reflux disease [Unknown]
  - Pain [Unknown]
  - Taste disorder [Unknown]
  - Drug ineffective [Unknown]
  - Hypoaesthesia [Unknown]
